FAERS Safety Report 4846535-9 (Version None)
Quarter: 2005Q4

REPORT INFORMATION
  Report Type: 
  Country: None (occurrence: None)
  Receive Date: 20051201
  Receipt Date: 20051118
  Transmission Date: 20060501
  Serious: Yes (Hospitalization, Other)
  Sender: FDA-Public Use
  Company Number: 2005158402

PATIENT
  Age: 30 Year
  Sex: Female
  Weight: 57.1532 kg

DRUGS (8)
  1. LYRICA [Suspect]
     Indication: ILL-DEFINED DISORDER
     Dosage: 150 MG (75 MG, 2 IN 1 D), ORAL
     Route: 048
     Dates: start: 20051018, end: 20051101
  2. XANAX [Concomitant]
  3. KLONOPIN [Concomitant]
  4. ELAVIL [Concomitant]
  5. NORFLEX [Concomitant]
  6. FLEXERIL [Concomitant]
  7. NEURONTIN [Concomitant]
  8. VICODIN [Concomitant]

REACTIONS (3)
  - CONTUSION [None]
  - PETECHIAE [None]
  - PLATELET COUNT DECREASED [None]
